FAERS Safety Report 17900295 (Version 2)
Quarter: 2020Q2

REPORT INFORMATION
  Report Type: Spontaneous
  Country: US (occurrence: US)
  Receive Date: 20200616
  Receipt Date: 20200626
  Transmission Date: 20200714
  Serious: No
  Sender: FDA-Public Use
  Company Number: US-PFIZER INC-2020231970

PATIENT
  Age: 66 Year
  Sex: Male

DRUGS (1)
  1. TAFAMIDIS MEGLUMINE [Suspect]
     Active Substance: TAFAMIDIS MEGLUMINE
     Indication: CARDIAC AMYLOIDOSIS
     Dosage: 80 MG

REACTIONS (5)
  - Urinary hesitation [Unknown]
  - Drug ineffective [Unknown]
  - Micturition urgency [Unknown]
  - Condition aggravated [Unknown]
  - Blood homocysteine increased [Unknown]
